FAERS Safety Report 16684431 (Version 2)
Quarter: 2019Q3

REPORT INFORMATION
  Report Type: Spontaneous
  Country: AU (occurrence: AU)
  Receive Date: 20190808
  Receipt Date: 20190813
  Transmission Date: 20191004
  Serious: Yes (Other)
  Sender: FDA-Public Use
  Company Number: AU-MYLANLABS-2019M1073747

PATIENT
  Age: 26 Year
  Sex: Male

DRUGS (1)
  1. CLOZARIL [Suspect]
     Active Substance: CLOZAPINE
     Indication: SCHIZOPHRENIA
     Dosage: UNK
     Route: 048
     Dates: start: 20190725

REACTIONS (3)
  - Mean cell haemoglobin decreased [Not Recovered/Not Resolved]
  - Hepatocellular injury [Unknown]
  - Diastolic hypertension [Unknown]

NARRATIVE: CASE EVENT DATE: 20190730
